FAERS Safety Report 4316255-8 (Version None)
Quarter: 2004Q1

REPORT INFORMATION
  Report Type: 
  Country: None (occurrence: None)
  Receive Date: 20040310
  Receipt Date: 20031015
  Transmission Date: 20041129
  Serious: Yes (Other)
  Sender: FDA-Public Use
  Company Number: HQWYE030127JAN03

PATIENT
  Age: 59 Year
  Sex: Female

DRUGS (4)
  1. PROTONIX [Suspect]
     Dosage: 40 MG 1 X PER DAY, ORAL
     Route: 048
  2. METRONIDAZOLE [Concomitant]
  3. LEVAQUIN [Concomitant]
  4. SYNTHROID [Concomitant]

REACTIONS (2)
  - PARANOIA [None]
  - PSYCHOMOTOR HYPERACTIVITY [None]
